FAERS Safety Report 18762162 (Version 1)
Quarter: 2021Q1

REPORT INFORMATION
  Report Type: Spontaneous
  Country: US (occurrence: US)
  Receive Date: 20210119
  Receipt Date: 20210119
  Transmission Date: 20210419
  Serious: No
  Sender: FDA-Public Use
  Company Number: None

PATIENT
  Age: 25 Year
  Sex: Female
  Weight: 80 kg

DRUGS (1)
  1. UBROGEPANT (UBROGEPANT 100MG TAB) [Suspect]
     Active Substance: UBROGEPANT
     Indication: MIGRAINE
     Dosage: ?          OTHER FREQUENCY:PRN;?
     Route: 048
     Dates: start: 20200819, end: 20210106

REACTIONS (1)
  - Dizziness [None]

NARRATIVE: CASE EVENT DATE: 20210106
